FAERS Safety Report 20890446 (Version 3)
Quarter: 2023Q1

REPORT INFORMATION
  Report Type: Spontaneous
  Country: US (occurrence: US)
  Receive Date: 20220530
  Receipt Date: 20230124
  Transmission Date: 20230418
  Serious: No
  Sender: FDA-Public Use
  Company Number: US-BRISTOL-MYERS SQUIBB COMPANY-2022-033892

PATIENT
  Age: 75 Year
  Sex: Male

DRUGS (3)
  1. REVLIMID [Suspect]
     Active Substance: LENALIDOMIDE
     Indication: Product used for unknown indication
     Dosage: FREQUENCY: OTHER
     Route: 048
     Dates: start: 20200218
  2. REVLIMID [Suspect]
     Active Substance: LENALIDOMIDE
     Dosage: FREQUENCY- OTHER
     Route: 048
     Dates: start: 202107
  3. REVLIMID [Suspect]
     Active Substance: LENALIDOMIDE
     Dosage: FREQUENCY: OTHER
     Route: 048
     Dates: start: 20210629

REACTIONS (1)
  - Diarrhoea [Unknown]

NARRATIVE: CASE EVENT DATE: 20220401
